FAERS Safety Report 5106982-7 (Version None)
Quarter: 2006Q3

REPORT INFORMATION
  Report Type: 
  Country: None (occurrence: None)
  Receive Date: 20060913
  Receipt Date: 20060830
  Transmission Date: 20061208
  Serious: Yes (Hospitalization)
  Sender: FDA-Public Use
  Company Number: 2006S1000207

PATIENT
  Age: 37 Year
  Sex: Female

DRUGS (2)
  1. SORIATANE [Suspect]
     Indication: DRUG USE FOR UNKNOWN INDICATION
     Dosage: UNK; PO
     Route: 048
  2. METHOXSALEN [Suspect]
     Indication: PSORIASIS
     Dosage: 10 MG; QD; UNK
     Route: 065
     Dates: start: 20050501, end: 20050101

REACTIONS (4)
  - ABORTION INDUCED [None]
  - DRUG EXPOSURE BEFORE PREGNANCY [None]
  - DRUG EXPOSURE DURING PREGNANCY [None]
  - PREGNANCY [None]
